FAERS Safety Report 9130089 (Version 5)
Quarter: 2014Q2

REPORT INFORMATION
  Report Type: Spontaneous
  Country: US (occurrence: US)
  Receive Date: 20130228
  Receipt Date: 20140618
  Transmission Date: 20141212
  Serious: Yes (Hospitalization, Other)
  Sender: FDA-Public Use
  Company Number: US-009507513-1302USA012141

PATIENT
  Sex: Female
  Weight: 77.98 kg

DRUGS (5)
  1. FOSAMAX [Suspect]
     Indication: CALCIUM DEFICIENCY
     Dosage: 70 MG, QW
     Route: 048
     Dates: start: 20011227
  2. FOSAMAX [Suspect]
     Indication: OSTEOARTHRITIS
  3. ALENDRONATE SODIUM [Suspect]
     Indication: CALCIUM DEFICIENCY
     Dosage: 70 MG, QW
     Route: 048
     Dates: start: 20080226, end: 201103
  4. ALENDRONATE SODIUM [Suspect]
     Indication: OSTEOARTHRITIS
  5. PRILOSEC [Concomitant]
     Dosage: UNK
     Dates: start: 20010123, end: 20030527

REACTIONS (71)
  - Femur fracture [Unknown]
  - Intramedullary rod insertion [Unknown]
  - Femur fracture [Unknown]
  - Intramedullary rod insertion [Unknown]
  - Femur fracture [Recovered/Resolved]
  - Intramedullary rod insertion [Unknown]
  - Removal of internal fixation [Unknown]
  - Surgery [Unknown]
  - Hip surgery [Unknown]
  - Spinal operation [Unknown]
  - Hip arthroplasty [Unknown]
  - Spinal fusion surgery [Unknown]
  - Diabetes mellitus [Unknown]
  - Anaemia postoperative [Unknown]
  - Thrombosis prophylaxis [Unknown]
  - Tongue discolouration [Unknown]
  - Arthrodesis [Unknown]
  - Blister [Unknown]
  - Constipation [Unknown]
  - Low turnover osteopathy [Unknown]
  - Fall [Unknown]
  - Foot operation [Unknown]
  - Nerve injury [Unknown]
  - Asthma [Unknown]
  - Radiotherapy [Unknown]
  - Essential hypertension [Unknown]
  - Hyperlipidaemia [Unknown]
  - Hypothyroidism [Unknown]
  - Blood potassium decreased [Unknown]
  - Angiopathy [Unknown]
  - Osteoporosis [Unknown]
  - Hysterectomy [Unknown]
  - Road traffic accident [Unknown]
  - Ovarian cyst [Unknown]
  - Coronary artery disease [Unknown]
  - Thrombosis [Unknown]
  - Tendon disorder [Unknown]
  - Bursitis [Unknown]
  - Contusion [Unknown]
  - Muscular weakness [Unknown]
  - Hiatus hernia [Unknown]
  - Gastrointestinal haemorrhage [Unknown]
  - Hypothyroidism [Unknown]
  - Anxiety [Unknown]
  - Sciatica [Unknown]
  - Ligament sprain [Unknown]
  - Extraskeletal ossification [Unknown]
  - Spondylolisthesis [Unknown]
  - Intervertebral disc degeneration [Unknown]
  - Radiculopathy [Unknown]
  - Sinus bradycardia [Unknown]
  - Blood pressure decreased [Recovered/Resolved]
  - Hypokalaemia [Recovering/Resolving]
  - Post procedural haemorrhage [Recovering/Resolving]
  - Haemorrhagic anaemia [Recovering/Resolving]
  - Blood glucose increased [Recovered/Resolved]
  - Pulmonary oedema [Unknown]
  - Pleural effusion [Unknown]
  - Atelectasis [Unknown]
  - Fluid overload [Recovering/Resolving]
  - Urinary tract infection [Unknown]
  - Bursitis [Unknown]
  - Spinal claudication [Unknown]
  - Nerve block [Unknown]
  - Arthroscopy [Unknown]
  - Pain in extremity [Not Recovered/Not Resolved]
  - Back pain [Unknown]
  - Off label use [Unknown]
  - Drug ineffective [Unknown]
  - Back pain [Not Recovered/Not Resolved]
  - Gastrooesophageal reflux disease [Unknown]
